FAERS Safety Report 5371865-4 (Version None)
Quarter: 2007Q2

REPORT INFORMATION
  Report Type: 
  Country: None (occurrence: None)
  Receive Date: 20070625
  Receipt Date: 20070615
  Transmission Date: 20071010
  Serious: Yes (Hospitalization, Other)
  Sender: FDA-Public Use
  Company Number: 2007AL002439

PATIENT
  Age: 67 Year
  Sex: Female

DRUGS (1)
  1. TRAMADOL HCL [Suspect]
     Indication: PROCEDURAL PAIN
     Dosage: 200 MG; QD; PO
     Route: 048
     Dates: start: 20070330

REACTIONS (4)
  - DIARRHOEA [None]
  - DRY MOUTH [None]
  - STOMATITIS [None]
  - VOMITING [None]
